FAERS Safety Report 7342718-7 (Version None)
Quarter: 2011Q1

REPORT INFORMATION
  Report Type: 
  Country: None (occurrence: None)
  Receive Date: 20110301
  Receipt Date: 20110215
  Transmission Date: 20110831
  Serious: Yes (Other)
  Sender: FDA-Public Use
  Company Number: FK201100232

PATIENT
  Age: 78 Year
  Sex: Female

DRUGS (5)
  1. DOXORUBICIN (MANUFACTURER UNKNOWN)(DOXORUBICIN HYDROCHLORIDE)(DOXORUBI [Suspect]
     Indication: DIFFUSE LARGE B-CELL LYMPHOMA
  2. PREDNISOLONE [Suspect]
     Indication: DIFFUSE LARGE B-CELL LYMPHOMA
  3. RITUXIMAB(RITUXIMAB)(RITUXIMAB) [Suspect]
     Indication: DIFFUSE LARGE B-CELL LYMPHOMA
  4. VINCRISTINE [Suspect]
     Indication: DIFFUSE LARGE B-CELL LYMPHOMA
  5. CYCLOPHOSPHAMIDE [Suspect]
     Indication: DIFFUSE LARGE B-CELL LYMPHOMA

REACTIONS (4)
  - ILEAL STENOSIS [None]
  - ABDOMINAL PAIN [None]
  - VOMITING [None]
  - INTESTINAL DILATATION [None]
